FAERS Safety Report 9156547 (Version 1)
Quarter: 2013Q1

REPORT INFORMATION
  Report Type: Spontaneous
  Country: US (occurrence: None)
  Receive Date: 20130307
  Receipt Date: 20130307
  Transmission Date: 20140127
  Serious: Yes (Hospitalization)
  Sender: FDA-Public Use
  Company Number: None

PATIENT
  Age: 42 Year
  Sex: Male

DRUGS (1)
  1. FENTANYL PATCH 100MCG [Suspect]
     Indication: PAIN
     Dosage: 1 PATCH EVERY 72 HOURS TOP
     Route: 061
     Dates: start: 20121201, end: 20130305

REACTIONS (2)
  - Coma [None]
  - Device breakage [None]
